FAERS Safety Report 22361656 (Version 1)
Quarter: 2023Q2

REPORT INFORMATION
  Report Type: Spontaneous
  Country: US (occurrence: None)
  Receive Date: 20230524
  Receipt Date: 20230524
  Transmission Date: 20230721
  Serious: No
  Sender: FDA-Public Use
  Company Number: None

PATIENT

DRUGS (2)
  1. AMIODARONE [Suspect]
     Active Substance: AMIODARONE
  2. AMITRIPTYLINE HYDROCHLORIDE [Suspect]
     Active Substance: AMITRIPTYLINE HYDROCHLORIDE

REACTIONS (4)
  - Product dispensing error [None]
  - Wrong product administered [None]
  - Mental status changes [None]
  - Transcription medication error [None]
